FAERS Safety Report 6142119-3 (Version None)
Quarter: 2009Q2

REPORT INFORMATION
  Report Type: 
  Country: None (occurrence: None)
  Receive Date: 20090402
  Receipt Date: 20090327
  Transmission Date: 20091009
  Serious: Yes (Other)
  Sender: FDA-Public Use
  Company Number: US-AMGEN-STX338873

PATIENT
  Sex: Female
  Weight: 58.1 kg

DRUGS (7)
  1. SENSIPAR [Suspect]
     Indication: HYPERPARATHYROIDISM SECONDARY
     Route: 048
     Dates: start: 20081104, end: 20081209
  2. FERROUS SULFATE TAB [Concomitant]
     Dates: start: 20070105
  3. FUROSEMIDE [Concomitant]
     Dates: start: 20050322
  4. POTASSIUM CHLORIDE [Concomitant]
     Dates: start: 20080920
  5. CALCITRIOL [Concomitant]
     Dates: start: 20050503
  6. FOSRENOL [Concomitant]
     Dates: start: 20080907
  7. VITAMIN B COMPLEX CAP [Concomitant]
     Dates: start: 20080101

REACTIONS (3)
  - RASH GENERALISED [None]
  - SKIN EXFOLIATION [None]
  - SKIN INFECTION [None]
